FAERS Safety Report 9051546 (Version 3)
Quarter: 2013Q4

REPORT INFORMATION
  Report Type: Spontaneous
  Country: TR (occurrence: TR)
  Receive Date: 20130207
  Receipt Date: 20131106
  Transmission Date: 20140711
  Serious: Yes (Other)
  Sender: FDA-Public Use
  Company Number: TR-AMGEN-TURSP2012067701

PATIENT
  Age: 54 Year
  Sex: Female

DRUGS (5)
  1. ENBREL [Suspect]
     Indication: PSORIATIC ARTHROPATHY
     Dosage: 50 MG, WEEKLY
     Route: 058
     Dates: start: 20120518
  2. CORTISONE [Concomitant]
     Indication: PSORIATIC ARTHROPATHY
     Dosage: 2.5 MG, 1X/DAY
     Route: 048
     Dates: start: 2010
  3. ARAVA [Concomitant]
     Indication: PSORIATIC ARTHROPATHY
     Dosage: UNK UNK, QD
     Route: 048
     Dates: start: 2011
  4. SALAZOPYRIN [Concomitant]
     Indication: PSORIATIC ARTHROPATHY
     Dosage: UNK
     Route: 048
     Dates: start: 2011
  5. SALAZOPYRIN [Concomitant]
     Dosage: UNK UNK, BID
     Route: 048

REACTIONS (7)
  - Nephrolithiasis [Not Recovered/Not Resolved]
  - Pain [Not Recovered/Not Resolved]
  - Blood urine present [Unknown]
  - Bone pain [Unknown]
  - Urinary tract infection [Recovered/Resolved]
  - Injection site swelling [Not Recovered/Not Resolved]
  - Influenza [Recovered/Resolved]
